FAERS Safety Report 5289243-5 (Version None)
Quarter: 2007Q2

REPORT INFORMATION
  Report Type: 
  Country: None (occurrence: None)
  Receive Date: 20070403
  Receipt Date: 20070403
  Transmission Date: 20071010
  Serious: Yes (Death)
  Sender: FDA-Public Use
  Company Number: None

PATIENT
  Sex: Male

DRUGS (2)
  1. PAROXETINE [Suspect]
     Indication: DEPRESSION
     Dosage: 20 MG ONE-HALF TAB QD PO
     Route: 048
     Dates: start: 20070313, end: 20070316
  2. ALPRAZOLAM [Suspect]
     Indication: ANXIETY
     Dosage: 0.25 MG ONE Q8H PRN PO
     Route: 048
     Dates: start: 20070313, end: 20070316

REACTIONS (1)
  - COMPLETED SUICIDE [None]
